FAERS Safety Report 4508818-1 (Version None)
Quarter: 2004Q4

REPORT INFORMATION
  Report Type: 
  Country: None (occurrence: None)
  Receive Date: 20041123
  Receipt Date: 20040826
  Transmission Date: 20050328
  Serious: No
  Sender: FDA-Public Use
  Company Number: US-GLAXOSMITHKLINE-A0523630A

PATIENT
  Age: 76 Year
  Sex: Male

DRUGS (2)
  1. WELLBUTRIN [Suspect]
     Indication: DEPRESSION
     Dosage: 300MG PER DAY
     Route: 048
  2. MULTIVITAMIN [Concomitant]

REACTIONS (3)
  - AGGRESSION [None]
  - AMNESIA [None]
  - BLOOD PRESSURE INCREASED [None]
